FAERS Safety Report 13625790 (Version 2)
Quarter: 2017Q2

REPORT INFORMATION
  Report Type: Spontaneous
  Country: US (occurrence: US)
  Receive Date: 20170607
  Receipt Date: 20170619
  Transmission Date: 20170830
  Serious: Yes (Other)
  Sender: FDA-Public Use
  Company Number: US-SA-2017SA099655

PATIENT
  Age: 54 Year
  Sex: Female
  Weight: 47.62 kg

DRUGS (5)
  1. DOXIL [Concomitant]
     Active Substance: DOXORUBICIN HYDROCHLORIDE
     Route: 042
  2. TAXOTERE [Suspect]
     Active Substance: DOCETAXEL
     Dosage: DENSE 20MG
     Route: 051
     Dates: start: 20050427, end: 20050427
  3. ADRIAMYCIN [Concomitant]
     Active Substance: DOXORUBICIN HYDROCHLORIDE
     Route: 042
  4. TAXOTERE [Suspect]
     Active Substance: DOCETAXEL
     Dosage: DENSE 20MG
     Route: 051
     Dates: start: 20050608, end: 20050608
  5. NEOSAR [Concomitant]
     Active Substance: CYCLOPHOSPHAMIDE
     Indication: BREAST CANCER
     Route: 042

REACTIONS (5)
  - Hair colour changes [Recovering/Resolving]
  - Alopecia [Recovering/Resolving]
  - Hair texture abnormal [Recovering/Resolving]
  - Injury [Unknown]
  - Psychological trauma [Unknown]

NARRATIVE: CASE EVENT DATE: 20050530
